FAERS Safety Report 18329328 (Version 1)
Quarter: 2020Q3

REPORT INFORMATION
  Report Type: Spontaneous
  Country: FR (occurrence: FR)
  Receive Date: 20200930
  Receipt Date: 20200930
  Transmission Date: 20201103
  Serious: Yes (Hospitalization)
  Sender: FDA-Public Use
  Company Number: FR-ACCORD-203487

PATIENT
  Age: 75 Year
  Sex: Female

DRUGS (8)
  1. AMLODIPINE [Suspect]
     Active Substance: AMLODIPINE BESYLATE
     Route: 048
     Dates: start: 20200723, end: 20200727
  2. PREGABALIN. [Suspect]
     Active Substance: PREGABALIN
     Route: 048
     Dates: start: 20200723, end: 20200727
  3. EPITOMAX [Suspect]
     Active Substance: TOPIRAMATE
     Route: 048
     Dates: start: 20200723, end: 20200727
  4. DULOXETINE/DULOXETINE HYDROCHLORIDE [Suspect]
     Active Substance: DULOXETINE HYDROCHLORIDE
     Route: 048
     Dates: start: 20200723, end: 20200727
  5. ALPRAZOLAM. [Suspect]
     Active Substance: ALPRAZOLAM
     Route: 048
     Dates: start: 20200723, end: 20200727
  6. SPIRONOLACTONE. [Suspect]
     Active Substance: SPIRONOLACTONE
     Route: 048
     Dates: start: 20200723, end: 20200727
  7. SOLIAN [Suspect]
     Active Substance: AMISULPRIDE
     Route: 048
     Dates: start: 20200723, end: 20200727
  8. ALTIZIDE [Suspect]
     Active Substance: ALTHIAZIDE
     Route: 048
     Dates: start: 20200723, end: 20200727

REACTIONS (9)
  - Wrong patient received product [Unknown]
  - Anxiety [Not Recovered/Not Resolved]
  - Hallucination [Not Recovered/Not Resolved]
  - Hypotension [Recovered/Resolved]
  - Product prescribing error [Unknown]
  - Somnolence [Recovered/Resolved]
  - Aggression [Not Recovered/Not Resolved]
  - Insomnia [Not Recovered/Not Resolved]
  - Chest discomfort [Not Recovered/Not Resolved]

NARRATIVE: CASE EVENT DATE: 20200723
